FAERS Safety Report 6222209 (Version 2)
Quarter: 2013Q3

REPORT INFORMATION
  Report Type: Spontaneous
  Country: GB (occurrence: GB)
  Receive Date: 20070124
  Receipt Date: 20130812
  Transmission Date: 20140515
  Serious: Yes (Other)
  Sender: FDA-Public Use
  Company Number: GB-BRISTOL-MYERS SQUIBB COMPANY-13649744

PATIENT
  Age: 52 Year
  Sex: Female

DRUGS (9)
  1. REYATAZ [Suspect]
     Indication: HIV INFECTION
     Route: 048
     Dates: start: 20041005, end: 20061219
  2. COMBIVIR [Concomitant]
     Indication: ANTIRETROVIRAL THERAPY
     Route: 048
     Dates: start: 20040622
  3. FUROSEMIDE [Concomitant]
     Route: 048
  4. GLICLAZIDE [Concomitant]
     Route: 048
  5. METFORMIN HCL [Concomitant]
     Route: 048
  6. PHENOXYMETHYLPENICILLIN [Concomitant]
     Route: 048
  7. PRAVASTATIN SODIUM [Concomitant]
     Route: 048
  8. RITONAVIR [Concomitant]
     Indication: ANTIRETROVIRAL THERAPY
     Route: 048
     Dates: start: 20031202
  9. SENNA [Concomitant]
     Route: 048

REACTIONS (2)
  - Nephrolithiasis [Recovered/Resolved]
  - Back pain [Recovered/Resolved]
